FAERS Safety Report 13688663 (Version 1)
Quarter: 2017Q2

REPORT INFORMATION
  Report Type: Spontaneous
  Country: US (occurrence: US)
  Receive Date: 20170623
  Receipt Date: 20170623
  Transmission Date: 20170830
  Serious: No
  Sender: FDA-Public Use
  Company Number: None

PATIENT
  Sex: Male

DRUGS (1)
  1. DINITROCHLOROBENZENE. [Suspect]
     Active Substance: DINITROCHLOROBENZENE

REACTIONS (4)
  - Application site irritation [None]
  - Scar [None]
  - Application site pruritus [None]
  - Scab [None]
